FAERS Safety Report 9170367 (Version 1)
Quarter: 2013Q1

REPORT INFORMATION
  Report Type: Spontaneous
  Country: US (occurrence: US)
  Receive Date: 20130319
  Receipt Date: 20130319
  Transmission Date: 20140127
  Serious: Yes (Hospitalization)
  Sender: FDA-Public Use
  Company Number: US-BAYER-2013-031497

PATIENT
  Age: 40 Year
  Sex: Female

DRUGS (7)
  1. YAZ [Suspect]
  2. LIPOFENE [Concomitant]
     Dosage: 150 MG, UNK
  3. CLARITIN-D [Concomitant]
  4. TOPAMAX [Concomitant]
  5. LIPITOR [Concomitant]
  6. B-COMPLEX [VITAMIN B NOS] [Concomitant]
  7. TYLENOL [Concomitant]
     Indication: PAIN

REACTIONS (3)
  - Pulmonary embolism [None]
  - Dyspnoea [None]
  - Chest pain [None]
